FAERS Safety Report 10548170 (Version 3)
Quarter: 2014Q4

REPORT INFORMATION
  Report Type: Spontaneous
  Country: US (occurrence: US)
  Receive Date: 20141028
  Receipt Date: 20141030
  Transmission Date: 20150529
  Serious: Yes (Death, Hospitalization)
  Sender: FDA-Public Use
  Company Number: US-ROCHE-1480727

PATIENT
  Sex: Male

DRUGS (1)
  1. XOLAIR [Suspect]
     Active Substance: OMALIZUMAB
     Indication: PRODUCT USED FOR UNKNOWN INDICATION
     Route: 065
     Dates: start: 201403

REACTIONS (8)
  - General physical health deterioration [Unknown]
  - Renal failure [Fatal]
  - Hepatic failure [Fatal]
  - Sepsis [Fatal]
  - Vomiting [Unknown]
  - Infection [Fatal]
  - Cardiac failure [Fatal]
  - Decreased appetite [Unknown]
